FAERS Safety Report 13215528 (Version 1)
Quarter: 2017Q1

REPORT INFORMATION
  Report Type: Spontaneous
  Country: US (occurrence: US)
  Receive Date: 20170209
  Receipt Date: 20170209
  Transmission Date: 20170428
  Serious: No
  Sender: FDA-Public Use
  Company Number: US-ALLERGAN-1679443US

PATIENT
  Age: 75 Year
  Sex: Female
  Weight: 58.96 kg

DRUGS (1)
  1. BOTOX [Suspect]
     Active Substance: ONABOTULINUMTOXINA
     Indication: TORTICOLLIS
     Dosage: UNK UNK, SINGLE
     Route: 030
     Dates: start: 20161005, end: 20161005

REACTIONS (6)
  - Constipation [Recovering/Resolving]
  - Dysphagia [Recovering/Resolving]
  - Peristalsis visible [Recovering/Resolving]
  - Musculoskeletal stiffness [Recovering/Resolving]
  - Pain [Recovered/Resolved]
  - Muscular weakness [Recovering/Resolving]

NARRATIVE: CASE EVENT DATE: 20161005
